FAERS Safety Report 4807666-2 (Version None)
Quarter: 2005Q4

REPORT INFORMATION
  Report Type: 
  Country: None (occurrence: None)
  Receive Date: 20051020
  Receipt Date: 20051010
  Transmission Date: 20060501
  Serious: Yes (Hospitalization, Other)
  Sender: FDA-Public Use
  Company Number: 2005140574

PATIENT
  Age: 56 Year
  Sex: Male
  Weight: 104.3273 kg

DRUGS (3)
  1. ZOLOFT [Suspect]
     Indication: ANXIETY
     Dosage: 50 MG (1D)
     Dates: start: 20050101, end: 20051007
  2. ZOLOFT [Suspect]
     Indication: DEPRESSION
     Dosage: 50 MG (1D)
     Dates: start: 20050101, end: 20051007
  3. DOXEPIN HCL [Suspect]
     Indication: INSOMNIA
     Dates: end: 20051007

REACTIONS (7)
  - BENIGN PROSTATIC HYPERPLASIA [None]
  - DRUG INTERACTION [None]
  - FALL [None]
  - HEAD INJURY [None]
  - INSOMNIA [None]
  - RHABDOMYOLYSIS [None]
  - SEROTONIN SYNDROME [None]
